FAERS Safety Report 24614994 (Version 9)
Quarter: 2025Q1

REPORT INFORMATION
  Report Type: Spontaneous
  Country: US (occurrence: US)
  Receive Date: 20241113
  Receipt Date: 20250304
  Transmission Date: 20250409
  Serious: Yes (Other)
  Sender: PFIZER
  Company Number: US-PFIZER INC-PV202400146723

PATIENT
  Age: 59 Year
  Sex: Female
  Weight: 97.7 kg

DRUGS (13)
  1. BRAFTOVI [Suspect]
     Active Substance: ENCORAFENIB
     Indication: Malignant melanoma
     Dosage: 450 MG DAILY
     Dates: start: 20231220
  2. BRAFTOVI [Suspect]
     Active Substance: ENCORAFENIB
     Indication: Breast cancer
     Dosage: 300 MG DAILY
     Dates: start: 20240109
  3. BRAFTOVI [Suspect]
     Active Substance: ENCORAFENIB
     Dosage: 150 MG, DAILY
     Dates: start: 20240508
  4. BRAFTOVI [Suspect]
     Active Substance: ENCORAFENIB
     Route: 048
  5. BRAFTOVI [Suspect]
     Active Substance: ENCORAFENIB
  6. BRAFTOVI [Suspect]
     Active Substance: ENCORAFENIB
     Dosage: 150 MG ONCE DAILY/TAKE 2 CAPSULES ONCE DAILY
     Route: 048
  7. BRAFTOVI [Suspect]
     Active Substance: ENCORAFENIB
     Dosage: 75 MG CAPSULE, TAKE 2 CAPSULES ONCE DAILY
     Route: 048
  8. MEKTOVI [Suspect]
     Active Substance: BINIMETINIB
     Indication: Malignant melanoma
     Dosage: 45 MG, 2X/DAY
     Dates: start: 20231220
  9. MEKTOVI [Suspect]
     Active Substance: BINIMETINIB
     Indication: Breast cancer
     Dosage: 30 MG TWICE DAILY
     Dates: start: 20240109
  10. MEKTOVI [Suspect]
     Active Substance: BINIMETINIB
     Dosage: 45 MG BID (TWICE A DAY)
  11. MEKTOVI [Suspect]
     Active Substance: BINIMETINIB
     Route: 048
  12. MEKTOVI [Suspect]
     Active Substance: BINIMETINIB
     Dosage: 30 MG TWICE A DAY (TWO TABLETS BY MOUTH TWICE DAILY)
     Route: 048
  13. PREDNISONE [Concomitant]
     Active Substance: PREDNISONE
     Dosage: PREDNISONE 10 MG DAILY

REACTIONS (7)
  - Leukopenia [Unknown]
  - Neutropenia [Unknown]
  - Hypothyroidism [Unknown]
  - Dizziness [Not Recovered/Not Resolved]
  - Nausea [Recovered/Resolved]
  - Vomiting [Unknown]
  - Diarrhoea [Unknown]

NARRATIVE: CASE EVENT DATE: 20240103
